FAERS Safety Report 5449324-X (Version None)
Quarter: 2007Q3

REPORT INFORMATION
  Report Type: 
  Country: None (occurrence: None)
  Receive Date: 20070911
  Receipt Date: 20070831
  Transmission Date: 20080115
  Serious: Yes (Life-Threatening, Hospitalization)
  Sender: FDA-Public Use
  Company Number: DK-PFIZER INC-2007062548

PATIENT
  Sex: Male

DRUGS (4)
  1. SUTENT [Suspect]
     Indication: COLORECTAL CANCER
     Route: 048
  2. SUTENT [Suspect]
     Indication: COLORECTAL CANCER METASTATIC
  3. IRINOTECAN HCL [Concomitant]
  4. CETUXIMAB [Concomitant]

REACTIONS (1)
  - MULTI-ORGAN FAILURE [None]
